FAERS Safety Report 5424366-9 (Version None)
Quarter: 2007Q3

REPORT INFORMATION
  Report Type: 
  Country: None (occurrence: None)
  Receive Date: 20070822
  Receipt Date: 20070706
  Transmission Date: 20080115
  Serious: Yes (Death, Hospitalization)
  Sender: FDA-Public Use
  Company Number: 6036615

PATIENT
  Age: 39 Year
  Sex: Male

DRUGS (1)
  1. DICLOFENAC ( INJECTION) (DICLOFENAC) [Suspect]
     Indication: NASOPHARYNGITIS
     Dosage: SINGLE INJECTION (75 MG, 1 IN 1 ONCE), INTRAMUSCULAR
     Route: 030

REACTIONS (30)
  - ACUTE RESPIRATORY DISTRESS SYNDROME [None]
  - ASPERGILLOSIS [None]
  - BRONCHIAL OBSTRUCTION [None]
  - BRONCHOPULMONARY ASPERGILLOSIS [None]
  - DISSEMINATED INTRAVASCULAR COAGULATION [None]
  - DRUG TOXICITY [None]
  - GANGRENE [None]
  - ISCHAEMIC HEPATITIS [None]
  - LYMPHOCYTE PERCENTAGE DECREASED [None]
  - MULTI-ORGAN FAILURE [None]
  - MYOCARDITIS MYCOTIC [None]
  - MYOCARDITIS SEPTIC [None]
  - NECROSIS [None]
  - NEUTROPHIL PERCENTAGE INCREASED [None]
  - PNEUMONIA NECROTISING [None]
  - PROTEIN TOTAL DECREASED [None]
  - PULMONARY HAEMORRHAGE [None]
  - PURPURA FULMINANS [None]
  - RENAL DISORDER [None]
  - RENAL FAILURE [None]
  - RESPIRATORY FAILURE [None]
  - RHABDOMYOLYSIS [None]
  - SEPSIS [None]
  - SHOCK [None]
  - STEVENS-JOHNSON SYNDROME [None]
  - SWEAT GLAND DISORDER [None]
  - TOXIC EPIDERMAL NECROLYSIS [None]
  - TRACHEOBRONCHITIS [None]
  - TROPONIN INCREASED [None]
  - VASCULITIS [None]
